FAERS Safety Report 10781144 (Version 1)
Quarter: 2015Q1

REPORT INFORMATION
  Report Type: Spontaneous
  Country: US (occurrence: None)
  Receive Date: 20150209
  Receipt Date: 20150209
  Transmission Date: 20150721
  Serious: No
  Sender: FDA-Public Use
  Company Number: None

PATIENT

DRUGS (1)
  1. BACTRIM [Suspect]
     Active Substance: SULFAMETHOXAZOLE\TRIMETHOPRIM
     Route: 048

REACTIONS (4)
  - Drug dispensed to wrong patient [None]
  - Wrong drug administered [None]
  - Exposure during breast feeding [None]
  - Intercepted medication error [None]

NARRATIVE: CASE EVENT DATE: 2014
